FAERS Safety Report 18431528 (Version 1)
Quarter: 2020Q4

REPORT INFORMATION
  Report Type: Spontaneous
  Country: US (occurrence: US)
  Receive Date: 20201027
  Receipt Date: 20201027
  Transmission Date: 20210114
  Serious: Yes (Hospitalization)
  Sender: FDA-Public Use
  Company Number: None

PATIENT
  Age: 60 Year
  Sex: Male

DRUGS (12)
  1. ELIQUIS [Concomitant]
     Active Substance: APIXABAN
  2. HUMALOG [Concomitant]
     Active Substance: INSULIN LISPRO
  3. FLUOXETINE [Concomitant]
     Active Substance: FLUOXETINE HYDROCHLORIDE
  4. FINASTERIDE. [Concomitant]
     Active Substance: FINASTERIDE
  5. TEMOZOLOMIDE. [Suspect]
     Active Substance: TEMOZOLOMIDE
     Indication: SUPRAVENTRICULAR TACHYCARDIA
     Route: 048
  6. TAMSULOSIN [Concomitant]
     Active Substance: TAMSULOSIN
  7. MIRTAZAPINE. [Concomitant]
     Active Substance: MIRTAZAPINE
  8. VIMPAT [Concomitant]
     Active Substance: LACOSAMIDE
  9. OZEMPIC [Concomitant]
     Active Substance: SEMAGLUTIDE
  10. DILTIAZEM. [Concomitant]
     Active Substance: DILTIAZEM
  11. TOUJEO [Concomitant]
     Active Substance: INSULIN GLARGINE
  12. METFORMIN [Concomitant]
     Active Substance: METFORMIN HYDROCHLORIDE

REACTIONS (1)
  - Rehabilitation therapy [None]

NARRATIVE: CASE EVENT DATE: 20201026
